FAERS Safety Report 8012869-2 (Version None)
Quarter: 2011Q4

REPORT INFORMATION
  Report Type: 
  Country: None (occurrence: None)
  Receive Date: 20111229
  Receipt Date: 20111221
  Transmission Date: 20120403
  Serious: Yes (Hospitalization)
  Sender: FDA-Public Use
  Company Number: TW-B.I. PHARMACEUTICALS,INC./RIDGEFIELD-2011-EU-01289GD

PATIENT
  Age: 79 Year
  Sex: Female

DRUGS (6)
  1. IPRATROPIUM BROMIDE [Suspect]
     Indication: ASTHMA
     Dosage: 0.5 MG
     Route: 055
  2. ALBUTEROL SULFATE [Suspect]
     Indication: ASTHMA
     Dosage: 6 MG
     Route: 048
  3. BISOPROLOL [Concomitant]
     Indication: ARRHYTHMIA PROPHYLAXIS
     Dosage: 2.5 MG
  4. MEXILETINE HYDROCHLORIDE [Concomitant]
     Indication: ARRHYTHMIA PROPHYLAXIS
     Dosage: 200 MG
  5. TERBUTALINE [Suspect]
     Indication: ASTHMA
     Dosage: 5 MG
     Route: 055
  6. AMIODARONE [Concomitant]
     Indication: ARRHYTHMIA PROPHYLAXIS
     Dosage: 100 MG
     Route: 048

REACTIONS (3)
  - PALPITATIONS [None]
  - VENTRICULAR TACHYCARDIA [None]
  - CARDIOVERSION [None]
